FAERS Safety Report 17345812 (Version 1)
Quarter: 2020Q1

REPORT INFORMATION
  Report Type: Spontaneous
  Country: US (occurrence: US)
  Receive Date: 20200129
  Receipt Date: 20200129
  Transmission Date: 20200409
  Serious: Yes (Death, Hospitalization)
  Sender: FDA-Public Use
  Company Number: US-JNJFOC-20200139071

PATIENT
  Age: 51 Year
  Sex: Female

DRUGS (6)
  1. HYDROMORPHONE HCL [Suspect]
     Active Substance: HYDROMORPHONE HYDROCHLORIDE
     Indication: SUICIDE ATTEMPT
     Route: 048
  2. DIAZEPAM. [Suspect]
     Active Substance: DIAZEPAM
     Indication: SUICIDE ATTEMPT
     Route: 065
  3. ACETAMINOPHEN W/HYDROCODONE [Suspect]
     Active Substance: ACETAMINOPHEN\HYDROCODONE
     Indication: SUICIDE ATTEMPT
     Route: 065
  4. MORPHINE [Suspect]
     Active Substance: MORPHINE
     Indication: SUICIDE ATTEMPT
     Route: 065
  5. DURAGESIC [Suspect]
     Active Substance: FENTANYL
     Indication: SUICIDE ATTEMPT
     Route: 062
  6. TRAZODONE [Suspect]
     Active Substance: TRAZODONE HYDROCHLORIDE
     Indication: SUICIDE ATTEMPT
     Route: 065

REACTIONS (1)
  - Toxicity to various agents [Fatal]
